FAERS Safety Report 7981762-3 (Version None)
Quarter: 2011Q4

REPORT INFORMATION
  Report Type: 
  Country: None (occurrence: None)
  Receive Date: 20111215
  Receipt Date: 20111213
  Transmission Date: 20120403
  Serious: Yes (Hospitalization)
  Sender: FDA-Public Use
  Company Number: US-AMGEN-USASP2011043117

PATIENT
  Age: 49 Year
  Sex: Female
  Weight: 87 kg

DRUGS (5)
  1. DOXORUBICIN HCL [Suspect]
     Indication: BREAST CANCER
     Dosage: 60 MG/M2, UNK
     Route: 042
     Dates: start: 20110308
  2. PEGFILGRASTIM [Suspect]
     Indication: BREAST CANCER
     Dosage: 6 MG, UNK
     Route: 058
     Dates: start: 20110308
  3. BEVACIZUMAB [Suspect]
     Indication: BREAST CANCER
     Dosage: UNK
     Route: 042
     Dates: start: 20110308
  4. CYCLOPHOSPHAMIDE [Suspect]
     Indication: BREAST CANCER
     Dosage: 600 MG/M2, UNK
     Route: 042
     Dates: start: 20110308
  5. PACLITAXEL [Suspect]
     Indication: BREAST CANCER
     Dosage: 80 MG/M2, UNK
     Route: 042
     Dates: start: 20110308

REACTIONS (3)
  - DYSPNOEA [None]
  - NON-CARDIAC CHEST PAIN [None]
  - VASCULAR ACCESS COMPLICATION [None]
